FAERS Safety Report 9461470 (Version 1)
Quarter: 2013Q3

REPORT INFORMATION
  Report Type: Spontaneous
  Country: GB (occurrence: GB)
  Receive Date: 20130816
  Receipt Date: 20130816
  Transmission Date: 20140515
  Serious: Yes (Disabling)
  Sender: FDA-Public Use
  Company Number: GB-MYLANLABS-2013S1017574

PATIENT
  Age: 4 Decade
  Sex: Female

DRUGS (2)
  1. PAROXETINE [Suspect]
     Indication: DEPRESSION
     Dosage: 20MG
     Route: 065
  2. CITALOPRAM [Suspect]
     Dosage: 20MG DAILY
     Route: 065
     Dates: start: 2005

REACTIONS (1)
  - Alcoholism [Recovered/Resolved]
